FAERS Safety Report 7274856-1 (Version None)
Quarter: 2011Q1

REPORT INFORMATION
  Report Type: 
  Country: None (occurrence: None)
  Receive Date: 20110128
  Receipt Date: 20110112
  Transmission Date: 20110831
  Serious: Yes (Hospitalization)
  Sender: FDA-Public Use
  Company Number: AUR-APL-2011-00219

PATIENT
  Age: 73 Year
  Sex: Male

DRUGS (4)
  1. GARDENALE [Concomitant]
  2. BLOPRESS [Concomitant]
  3. ATENOLOL [Suspect]
     Indication: HYPERTENSION
     Dosage: 25MG - DAILY - ORAL
     Route: 048
     Dates: start: 20110105, end: 20110107
  4. NORVASC [Concomitant]

REACTIONS (3)
  - VENTRICULAR FAILURE [None]
  - SINUS BRADYCARDIA [None]
  - VENTRICULAR HYPERTROPHY [None]
